FAERS Safety Report 25945517 (Version 2)
Quarter: 2025Q4

REPORT INFORMATION
  Report Type: Spontaneous
  Country: AU (occurrence: AU)
  Receive Date: 20251021
  Receipt Date: 20251124
  Transmission Date: 20260117
  Serious: Yes (Other)
  Sender: NOVARTIS
  Company Number: AU-002147023-NVSC2025AU162050

PATIENT
  Age: 6 Decade
  Sex: Female

DRUGS (1)
  1. GLIVEC [Suspect]
     Active Substance: IMATINIB MESYLATE
     Indication: Chronic myeloid leukaemia
     Dosage: UNK
     Route: 065

REACTIONS (24)
  - Second primary malignancy [Unknown]
  - Neutropenia [Unknown]
  - Malignant melanoma [Unknown]
  - Hypoacusis [Unknown]
  - Visual impairment [Unknown]
  - Cardiac disorder [Unknown]
  - Rash [Unknown]
  - Anaemia [Unknown]
  - Hair colour changes [Unknown]
  - Arthralgia [Unknown]
  - Cough [Unknown]
  - Eyelash hypopigmentation [Unknown]
  - Nail discolouration [Unknown]
  - Skin hypopigmentation [Unknown]
  - Bone density decreased [Unknown]
  - Fatigue [Unknown]
  - Blood cholesterol increased [Unknown]
  - Heavy menstrual bleeding [Unknown]
  - Vomiting [Unknown]
  - Diarrhoea [Unknown]
  - Pharyngeal ulceration [Unknown]
  - Urticaria [Unknown]
  - Eczema [Unknown]
  - Furuncle [Unknown]
